FAERS Safety Report 12317315 (Version 1)
Quarter: 2016Q2

REPORT INFORMATION
  Report Type: Spontaneous
  Country: FR (occurrence: FR)
  Receive Date: 20160429
  Receipt Date: 20160429
  Transmission Date: 20160815
  Serious: Yes (Hospitalization, Other)
  Sender: FDA-Public Use
  Company Number: FR-ELI_LILLY_AND_COMPANY-FR201604006320

PATIENT
  Age: 67 Year
  Sex: Male

DRUGS (5)
  1. AVASTIN [Suspect]
     Active Substance: BEVACIZUMAB
     Indication: LUNG NEOPLASM MALIGNANT
     Dosage: UNK, CYCLICAL
     Route: 042
  2. CISPLATINE [Concomitant]
     Active Substance: CISPLATIN
     Indication: LUNG NEOPLASM MALIGNANT
     Dosage: UNK, UNKNOWN
     Route: 065
     Dates: start: 2012
  3. AVASTIN [Suspect]
     Active Substance: BEVACIZUMAB
     Dosage: UNK, CYCLICAL
     Route: 042
     Dates: start: 201211, end: 201412
  4. ALIMTA [Suspect]
     Active Substance: PEMETREXED DISODIUM
     Indication: LUNG NEOPLASM MALIGNANT
     Dosage: UNK, CYCLICAL
     Route: 065
  5. ALIMTA [Suspect]
     Active Substance: PEMETREXED DISODIUM
     Dosage: UNK UNK, CYCLICAL
     Route: 065
     Dates: start: 201211, end: 201412

REACTIONS (4)
  - Myocardial infarction [Unknown]
  - Myocardial ischaemia [Recovered/Resolved with Sequelae]
  - Off label use [Unknown]
  - Malignant neoplasm progression [Unknown]

NARRATIVE: CASE EVENT DATE: 201412
